FAERS Safety Report 5922514-5 (Version None)
Quarter: 2008Q4

REPORT INFORMATION
  Report Type: 
  Country: None (occurrence: None)
  Receive Date: 20081017
  Receipt Date: 20081008
  Transmission Date: 20090506
  Serious: Yes (Hospitalization)
  Sender: FDA-Public Use
  Company Number: PHHY2008BE24252

PATIENT
  Sex: Female

DRUGS (2)
  1. EXFORGE [Suspect]
     Indication: HYPERTENSION
     Dosage: 5/80 MG DAILY
     Route: 048
     Dates: start: 20080501, end: 20080901
  2. TEMESTA [Concomitant]

REACTIONS (5)
  - FATIGUE [None]
  - HYPOCHLORAEMIA [None]
  - HYPONATRAEMIA [None]
  - MALAISE [None]
  - MUSCULAR WEAKNESS [None]
